FAERS Safety Report 5728681-0 (Version None)
Quarter: 2008Q2

REPORT INFORMATION
  Report Type: 
  Country: None (occurrence: None)
  Receive Date: 20080430
  Receipt Date: 20080111
  Transmission Date: 20081010
  Serious: No
  Sender: FDA-Public Use
  Company Number: 2008PV033939

PATIENT
  Age: 79 Year
  Sex: Female

DRUGS (3)
  1. SYMLIN [Suspect]
     Indication: TYPE 2 DIABETES MELLITUS
     Dosage: 60 MCG;TID;SC
     Route: 058
     Dates: start: 20080107
  2. HUMULIN 70/30 [Concomitant]
  3. HUMULIN R [Concomitant]

REACTIONS (1)
  - BLOOD GLUCOSE INCREASED [None]
